FAERS Safety Report 12213032 (Version 1)
Quarter: 2016Q1

REPORT INFORMATION
  Report Type: Spontaneous
  Country: US (occurrence: None)
  Receive Date: 20160325
  Receipt Date: 20160325
  Transmission Date: 20160526
  Serious: No
  Sender: FDA-Public Use
  Company Number: None

PATIENT
  Age: 58 Year
  Sex: Female

DRUGS (1)
  1. XELODA [Suspect]
     Active Substance: CAPECITABINE
     Indication: PRODUCT USED FOR UNKNOWN INDICATION
     Dosage: 2BID;7 ON, 7 OFF
     Route: 048
     Dates: start: 201403

REACTIONS (3)
  - Bronchial carcinoma [None]
  - Drug ineffective [None]
  - Malignant neoplasm progression [None]

NARRATIVE: CASE EVENT DATE: 20160324
